FAERS Safety Report 8337487-8 (Version None)
Quarter: 2012Q2

REPORT INFORMATION
  Report Type: 
  Country: None (occurrence: None)
  Receive Date: 20120504
  Receipt Date: 20120430
  Transmission Date: 20120825
  Serious: Yes (Other)
  Sender: FDA-Public Use
  Company Number: IL-ROXANE LABORATORIES, INC.-2012-RO-01154RO

PATIENT
  Age: 58 Year
  Sex: Male

DRUGS (4)
  1. RISPERIDONE [Suspect]
     Dosage: 2 MG
  2. RISPERIDONE [Suspect]
     Indication: SCHIZOPHRENIA, PARANOID TYPE
     Dosage: 3 MG
  3. RISPERIDONE [Suspect]
     Dosage: 6 MG
  4. SERTINDOLE [Suspect]
     Indication: SCHIZOPHRENIA, PARANOID TYPE
     Dosage: 16 MG

REACTIONS (2)
  - NO THERAPEUTIC RESPONSE [None]
  - PLEUROTHOTONUS [None]
